FAERS Safety Report 4903792-8 (Version None)
Quarter: 2006Q1

REPORT INFORMATION
  Report Type: 
  Country: None (occurrence: None)
  Receive Date: 20060208
  Receipt Date: 20050628
  Transmission Date: 20060701
  Serious: No
  Sender: FDA-Public Use
  Company Number: US-GLAXOSMITHKLINE-A0564490A

PATIENT
  Age: 4 Month

DRUGS (1)
  1. PAXIL [Suspect]
     Indication: PANIC DISORDER

REACTIONS (2)
  - DRUG EXPOSURE VIA BREAST MILK [None]
  - RASH [None]
